FAERS Safety Report 5113438-4 (Version None)
Quarter: 2006Q3

REPORT INFORMATION
  Report Type: 
  Country: None (occurrence: None)
  Receive Date: 20060924
  Receipt Date: 20060323
  Transmission Date: 20061208
  Serious: Yes (Hospitalization)
  Sender: FDA-Public Use
  Company Number: JP-SP-2006-00686

PATIENT
  Age: 63 Year
  Sex: Male

DRUGS (3)
  1. IMMUCYST [Suspect]
     Indication: CARCINOMA IN SITU OF BLADDER
     Route: 043
     Dates: start: 20060123, end: 20060313
  2. IMMUCYST [Suspect]
     Route: 043
     Dates: start: 20060123, end: 20060313
  3. ENOXACIN [Concomitant]
     Dates: start: 20060130, end: 20060205

REACTIONS (6)
  - ABNORMAL BEHAVIOUR [None]
  - CEREBRAL HAEMORRHAGE [None]
  - HAEMATOMA [None]
  - INCONTINENCE [None]
  - METASTASES TO CENTRAL NERVOUS SYSTEM [None]
  - POLLAKIURIA [None]
